FAERS Safety Report 9145492 (Version 1)
Quarter: 2013Q1

REPORT INFORMATION
  Report Type: Spontaneous
  Country: US (occurrence: None)
  Receive Date: 20130226
  Receipt Date: 20130226
  Transmission Date: 20140127
  Serious: No
  Sender: FDA-Public Use
  Company Number: None

PATIENT
  Age: 42 Year
  Sex: Female

DRUGS (1)
  1. NORDITROPIN FLEXPRO 10 MG/ML [Suspect]
     Route: 058
     Dates: start: 20130131, end: 20130222

REACTIONS (5)
  - Muscle spasms [None]
  - Arthralgia [None]
  - Carpal tunnel syndrome [None]
  - Restless legs syndrome [None]
  - Joint swelling [None]
